FAERS Safety Report 8556030-1 (Version None)
Quarter: 2012Q3

REPORT INFORMATION
  Report Type: 
  Country: None (occurrence: None)
  Receive Date: 20120801
  Receipt Date: 20120717
  Transmission Date: 20120928
  Serious: No
  Sender: FDA-Public Use
  Company Number: US-009507513-2012SP033555

PATIENT

DRUGS (3)
  1. NEXPLANON [Suspect]
  2. NEXPLANON [Suspect]
  3. NEXPLANON [Suspect]
     Dosage: UNK

REACTIONS (2)
  - MEDICAL DEVICE COMPLICATION [None]
  - NO ADVERSE EVENT [None]
